FAERS Safety Report 17293790 (Version 2)
Quarter: 2020Q3

REPORT INFORMATION
  Report Type: Spontaneous
  Country: US (occurrence: US)
  Receive Date: 20200121
  Receipt Date: 20200808
  Transmission Date: 20201102
  Serious: No
  Sender: FDA-Public Use
  Company Number: US-SA-2020SA012947

PATIENT

DRUGS (5)
  1. DUPIXENT [Suspect]
     Active Substance: DUPILUMAB
     Indication: NASAL CONGESTION
  2. DUPIXENT [Suspect]
     Active Substance: DUPILUMAB
     Indication: CHRONIC SINUSITIS
  3. DUPIXENT [Suspect]
     Active Substance: DUPILUMAB
     Indication: CHRONIC SINUSITIS
  4. DUPIXENT [Suspect]
     Active Substance: DUPILUMAB
     Indication: TYPE IIA HYPERLIPIDAEMIA
     Dosage: 300 MG, QOW
     Route: 058
     Dates: start: 20191004
  5. DUPIXENT [Suspect]
     Active Substance: DUPILUMAB
     Indication: UPPER-AIRWAY COUGH SYNDROME

REACTIONS (4)
  - Arthralgia [Unknown]
  - Product use in unapproved indication [Unknown]
  - Condition aggravated [Unknown]
  - Meniscus injury [Unknown]

NARRATIVE: CASE EVENT DATE: 202005
